FAERS Safety Report 6466152-7 (Version None)
Quarter: 2009Q4

REPORT INFORMATION
  Report Type: 
  Country: None (occurrence: None)
  Receive Date: 20091202
  Receipt Date: 20091125
  Transmission Date: 20100525
  Serious: Yes (Hospitalization)
  Sender: FDA-Public Use
  Company Number: JP-TYCO HEALTHCARE/MALLINCKRODT-T200902126

PATIENT
  Age: 44 Year
  Sex: Female

DRUGS (2)
  1. OPTIRAY 350 [Suspect]
     Indication: COMPUTERISED TOMOGRAM ABDOMEN
     Dosage: 100 ML, SINGLE
     Route: 042
     Dates: start: 20081024, end: 20081024
  2. LOXONIN                            /00890701/ [Suspect]
     Dosage: UNK
     Route: 048

REACTIONS (1)
  - RASH GENERALISED [None]
